FAERS Safety Report 7343200-3 (Version None)
Quarter: 2011Q1

REPORT INFORMATION
  Report Type: 
  Country: None (occurrence: None)
  Receive Date: 20110301
  Receipt Date: 20110218
  Transmission Date: 20110831
  Serious: Yes (Other)
  Sender: FDA-Public Use
  Company Number: JP-2011-10103

PATIENT
  Age: 88 Year
  Sex: Female

DRUGS (10)
  1. LENDORMIN D (BROTIZOLAM) [Concomitant]
  2. WARFARIN (WARFARIN POTASSIUM) [Concomitant]
  3. CARPERITIDE (GENETICAL RECOMBINATION) (CARPERITIDE(GENETICAL RECOMBINA [Concomitant]
  4. HEPARIN AND PREPARATIONS (HEPARIN AND PREPARATIONS) [Concomitant]
  5. TRAZODONE HCL [Concomitant]
  6. PLAVIX [Concomitant]
  7. LACTEC (LACTATED RINGERS) [Concomitant]
  8. SAMSCA [Suspect]
     Indication: CARDIAC FAILURE CONGESTIVE
     Dosage: 15 MG MILLIGRAM(S), QD, ORAL
     Route: 048
     Dates: start: 20110112, end: 20110115
  9. BENET (SODIUM RISEDRONATE HYDRATE) [Concomitant]
  10. LASIX [Concomitant]

REACTIONS (1)
  - HYPERNATRAEMIA [None]
